FAERS Safety Report 15731755 (Version 1)
Quarter: 2018Q4

REPORT INFORMATION
  Report Type: Spontaneous
  Country: DK (occurrence: DK)
  Receive Date: 20181217
  Receipt Date: 20181217
  Transmission Date: 20190205
  Serious: Yes (Other)
  Sender: FDA-Public Use
  Company Number: DK-B.I. PHARMACEUTICALS,INC./RIDGEFIELD-2018-12-003954

PATIENT
  Age: 39 Year
  Sex: Female

DRUGS (12)
  1. PAMOL [Concomitant]
     Active Substance: ACETAMINOPHEN
     Indication: PAIN
     Dosage: STYRKE: 500 MG.?DOSIS: 1 G VED BEHOV, H?JST 3 GANGE DAGLIGT.
     Route: 048
     Dates: start: 20170518
  2. SIFROL [Suspect]
     Active Substance: PRAMIPEXOLE
     Indication: RESTLESS LEGS SYNDROME
     Dosage: STYRKE: 0.088 MG.
     Route: 048
     Dates: start: 20180322
  3. PRIMCILLIN [Concomitant]
     Active Substance: PENICILLIN V POTASSIUM
     Indication: INFECTION
     Dosage: STYRKE: 800 MG.
     Route: 048
     Dates: start: 20170509, end: 20170519
  4. SAROTEN [Suspect]
     Active Substance: AMITRIPTYLINE
     Indication: NEURALGIA
     Dosage: STYRKE 10 MG + 25 MG?DOSIS 10 MG DGL. MED ?GNING HV. ANDEN UGE MED 10 MG TIL MAX. DOSIS P? 75 MG
     Route: 048
     Dates: start: 20170928, end: 20180112
  5. NEVANAC [Concomitant]
     Active Substance: NEPAFENAC
     Indication: INFLAMMATION
     Dosage: STYRKE: 1 MG/ML.
     Route: 050
     Dates: start: 20170424
  6. LEVAXIN [Concomitant]
     Active Substance: LEVOTHYROXINE SODIUM
     Indication: HYPOTHYROIDISM
     Dosage: STYRKE: 50 MIKROGRAM.
     Route: 048
     Dates: start: 20160926, end: 20170817
  7. PREGABALIN. [Suspect]
     Active Substance: PREGABALIN
     Indication: PAIN
     Dosage: STYRKE: 75 MG OG 150 MG. ?DOSIS: 12JAN2018-22MAJ2018 75 MG X 1 DGL. FRA 22MAJ2018 150 MG X 4 DGL.
     Route: 048
     Dates: start: 20180112
  8. TADOL [Suspect]
     Active Substance: TRAMADOL HYDROCHLORIDE
     Indication: PAIN
     Dosage: STYRKE: 50 MG.?DOSIS: 1 KAPSEL VED BEHOV, H?JST 3 GANGE DAGLIGT.
     Route: 048
     Dates: start: 20160817
  9. DULOXETINE ^TEVA^ [Suspect]
     Active Substance: DULOXETINE
     Indication: NEURALGIA
     Dosage: STYRKE: 30 MG OG 60 MG.?DOSIS: 22MAR2018-17MAJ2018: UKENDT. 17MAJ2018-14AUG2018 60 MG X 3 DGL.
     Route: 048
     Dates: start: 20180322, end: 20180814
  10. GABARATIO [Suspect]
     Active Substance: GABAPENTIN
     Indication: NEURALGIA
     Dosage: STYRKE: 300 MG.?DOSIS: 17MAJ2017-12JUL2017 300 MG X 3 DGL.
     Route: 048
     Dates: start: 20170517, end: 20170928
  11. DICLOXACILLIN [Concomitant]
     Active Substance: DICLOXACILLIN
     Indication: INFECTION
     Dosage: STYRKE: 500 MG.
     Route: 048
     Dates: start: 20170509, end: 20170519
  12. UNIKALK MED D-VITAMIN [Concomitant]
     Indication: MINERAL SUPPLEMENTATION
     Dosage: STYRKE: 400 MG + 19 MIKROGRAM.
     Route: 048
     Dates: start: 20170424

REACTIONS (19)
  - Visual impairment [Unknown]
  - Night blindness [Unknown]
  - Feeling abnormal [Unknown]
  - Gait disturbance [Unknown]
  - Urticaria [Unknown]
  - Dizziness [Unknown]
  - Vision blurred [Unknown]
  - Muscular weakness [Unknown]
  - Visual field defect [Unknown]
  - Headache [Unknown]
  - Memory impairment [Unknown]
  - Hypoacusis [Unknown]
  - Fatigue [Unknown]
  - Vomiting [Unknown]
  - Tinnitus [Unknown]
  - Disturbance in attention [Unknown]
  - Palpitations [Unknown]
  - Micturition urgency [Unknown]
  - Arrhythmia [Unknown]
